FAERS Safety Report 6906629-0 (Version None)
Quarter: 2010Q3

REPORT INFORMATION
  Report Type: 
  Country: None (occurrence: None)
  Receive Date: 20100708
  Receipt Date: 20090401
  Transmission Date: 20110219
  Serious: Yes (Death)
  Sender: FDA-Public Use
  Company Number: 2008051684

PATIENT
  Age: 45 Year
  Sex: Female
  Weight: 794 kg

DRUGS (25)
  1. CHANTIX [Suspect]
     Dates: start: 20070502, end: 20070626
  2. MORPHINE [Suspect]
  3. HYDROCODONE BITARTRATE [Suspect]
  4. ALBUTEROL [Concomitant]
  5. PHENYTOIN (PHENYTOIN) CAPSULE [Concomitant]
  6. TRIAMCINOLONE [Concomitant]
  7. HALOPERIDOL [Concomitant]
  8. BENAZEPRIL HYDROCHLORIDE [Concomitant]
  9. CLONIDINE [Concomitant]
  10. IBUPROFEN [Concomitant]
  11. COMBIVENT [Concomitant]
  12. BUPROPION HCL [Concomitant]
  13. RANITIDINE [Concomitant]
  14. LAMICTAL [Concomitant]
  15. PROVIGIL [Concomitant]
  16. CALCIUM WITH VITAMIN D (CALCIUM PHOSPHATE, CALCIUM SODIUM LACTATE, ERG [Concomitant]
  17. COGENTIN [Concomitant]
  18. DARVOCET [Concomitant]
  19. BACTRIM [Concomitant]
  20. VICODIN [Concomitant]
  21. ZOLPIDEM TARTRATE [Concomitant]
  22. CLONAZEPAM [Concomitant]
  23. HYDROXYZINE [Concomitant]
  24. XANAX [Concomitant]
  25. VANCOMYCIN [Concomitant]

REACTIONS (1)
  - COMPLETED SUICIDE [None]
